FAERS Safety Report 20081031 (Version 1)
Quarter: 2021Q4

REPORT INFORMATION
  Report Type: Spontaneous
  Country: US (occurrence: None)
  Receive Date: 20211117
  Receipt Date: 20211117
  Transmission Date: 20220304
  Serious: No
  Sender: FDA-Public Use
  Company Number: 2021A785784

PATIENT
  Age: 65 Year
  Sex: Female
  Weight: 63 kg

DRUGS (2)
  1. SYMBICORT [Suspect]
     Active Substance: BUDESONIDE\FORMOTEROL FUMARATE DIHYDRATE
     Indication: Asthma
     Dosage: 200 MCG/6 MCG, TWO PUFFS TWICE DAILY
     Route: 055
     Dates: start: 201812
  2. SYMBICORT [Suspect]
     Active Substance: BUDESONIDE\FORMOTEROL FUMARATE DIHYDRATE
     Indication: Asthma
     Dosage: 200 MCG/6 MCG, ONE PUFF TWICE DAILY
     Route: 055

REACTIONS (7)
  - Pain [Not Recovered/Not Resolved]
  - Weight increased [Unknown]
  - Ligament sprain [Unknown]
  - Pain in extremity [Not Recovered/Not Resolved]
  - Psychomotor hyperactivity [Not Recovered/Not Resolved]
  - Muscle spasms [Recovering/Resolving]
  - Product use issue [Unknown]

NARRATIVE: CASE EVENT DATE: 20180101
